FAERS Safety Report 15313744 (Version 1)
Quarter: 2018Q3

REPORT INFORMATION
  Report Type: Report from Study
  Country: GB (occurrence: GB)
  Receive Date: 20180824
  Receipt Date: 20180824
  Transmission Date: 20181010
  Serious: Yes (Other)
  Sender: FDA-Public Use
  Company Number: GB-ROCHE-2172477

PATIENT

DRUGS (2)
  1. RITUXIMAB. [Suspect]
     Active Substance: RITUXIMAB
     Indication: PRIMARY AMYLOIDOSIS
     Dosage: ON DAY 1
     Route: 042
  2. BENDAMUSTINE [Suspect]
     Active Substance: BENDAMUSTINE
     Indication: PRIMARY AMYLOIDOSIS
     Dosage: OVER MINUTES ON DAY 1 AND 2
     Route: 042

REACTIONS (10)
  - Fatigue [Unknown]
  - Infection [Unknown]
  - Diarrhoea [Unknown]
  - Hypotension [Unknown]
  - Febrile neutropenia [Unknown]
  - Constipation [Unknown]
  - Neutropenia [Unknown]
  - Rash [Unknown]
  - Gastrointestinal haemorrhage [Unknown]
  - Fluid overload [Unknown]
